FAERS Safety Report 21701315 (Version 1)
Quarter: 2022Q4

REPORT INFORMATION
  Report Type: Spontaneous
  Country: US (occurrence: None)
  Receive Date: 20221207
  Receipt Date: 20221207
  Transmission Date: 20230113
  Serious: Yes (Death)
  Sender: FDA-Public Use
  Company Number: None

PATIENT
  Age: 69 Year
  Sex: Female

DRUGS (25)
  1. REPATHA [Suspect]
     Active Substance: EVOLOCUMAB
     Indication: Hyperlipidaemia
     Dosage: FREQUENCY : EVERY OTHER WEEK;?
     Route: 058
     Dates: start: 20210704, end: 20220712
  2. ASPIRIN [Concomitant]
     Active Substance: ASPIRIN
  3. ANITVERT [Concomitant]
  4. ATORVASTATIN [Concomitant]
     Active Substance: ATORVASTATIN
  5. DULOXETINE [Concomitant]
  6. GLIMEPIRIDE [Concomitant]
     Active Substance: GLIMEPIRIDE
  7. ISORDIL TITRADOSE [Concomitant]
     Active Substance: ISOSORBIDE DINITRATE
  8. LASIX [Concomitant]
     Active Substance: FUROSEMIDE
  9. LEVOTHYROXINE [Concomitant]
     Active Substance: LEVOTHYROXINE
  10. MAGNESIUM [Concomitant]
  11. METOPROLOL TARTRATE [Concomitant]
     Active Substance: METOPROLOL TARTRATE
  12. MORPHINE [Concomitant]
     Active Substance: MORPHINE
  13. NAPROXEN [Concomitant]
     Active Substance: NAPROXEN
  14. NITROGLYCERN [Concomitant]
  15. PLAVIX [Concomitant]
     Active Substance: CLOPIDOGREL BISULFATE
  16. POTASSIUM CHLROIDE [Concomitant]
  17. PROTONIX [Concomitant]
     Active Substance: PANTOPRAZOLE SODIUM
  18. RANEXA [Concomitant]
     Active Substance: RANOLAZINE
  19. SPIRONOLACTONE [Concomitant]
  20. SUCRALFATE [Concomitant]
     Active Substance: SUCRALFATE
  21. VASCEPA [Concomitant]
  22. VITAMIN D [Concomitant]
     Active Substance: VITAMIN D NOS
  23. XANAX [Concomitant]
     Active Substance: ALPRAZOLAM
  24. ZOFRAN [Concomitant]
     Active Substance: ONDANSETRON HYDROCHLORIDE
  25. ZOLOFT [Concomitant]
     Active Substance: SERTRALINE HYDROCHLORIDE

REACTIONS (1)
  - Death [None]

NARRATIVE: CASE EVENT DATE: 20221207
